FAERS Safety Report 7703021-6 (Version None)
Quarter: 2011Q3

REPORT INFORMATION
  Report Type: 
  Country: None (occurrence: None)
  Receive Date: 20110823
  Receipt Date: 20110817
  Transmission Date: 20111222
  Serious: Yes (Hospitalization)
  Sender: FDA-Public Use
  Company Number: US-AMGEN-USASP2011042099

PATIENT
  Sex: Male

DRUGS (4)
  1. METHYLPREDNISOLONE [Concomitant]
     Indication: IDIOPATHIC THROMBOCYTOPENIC PURPURA
  2. IMMUNOGLOBULINS [Concomitant]
     Indication: IDIOPATHIC THROMBOCYTOPENIC PURPURA
  3. DANAZOL [Concomitant]
     Indication: IDIOPATHIC THROMBOCYTOPENIC PURPURA
  4. NPLATE [Suspect]
     Indication: IDIOPATHIC THROMBOCYTOPENIC PURPURA

REACTIONS (1)
  - HOSPITALISATION [None]
